FAERS Safety Report 4877196-0 (Version None)
Quarter: 2005Q4

REPORT INFORMATION
  Report Type: 
  Country: None (occurrence: None)
  Receive Date: 20051206
  Receipt Date: 20050930
  Transmission Date: 20060501
  Serious: No
  Sender: FDA-Public Use
  Company Number: USA0510109730

PATIENT
  Age: 59 Year
  Sex: Female

DRUGS (5)
  1. CYMBALTA [Suspect]
     Indication: FIBROMYALGIA
     Dosage: 60 MG
     Dates: start: 20050901
  2. GINKGO BILOBA [Concomitant]
  3. THYROID TAB [Concomitant]
  4. VICODIN [Concomitant]
  5. FLAXSEED OIL [Concomitant]

REACTIONS (1)
  - TINNITUS [None]
